FAERS Safety Report 4921301-4 (Version None)
Quarter: 2006Q1

REPORT INFORMATION
  Report Type: 
  Country: None (occurrence: None)
  Receive Date: 20060224
  Receipt Date: 20060214
  Transmission Date: 20060701
  Serious: Yes (Hospitalization)
  Sender: FDA-Public Use
  Company Number: US-JNJFOC-20060204528

PATIENT
  Sex: Female
  Weight: 90.72 kg

DRUGS (39)
  1. DURAGESIC-100 [Suspect]
     Route: 062
  2. BUMEX [Concomitant]
     Dosage: AS NEEDED
     Route: 048
  3. POTASSIUM CHLORIDE [Concomitant]
     Indication: NUTRITIONAL SUPPORT
     Dosage: AS NEEDED
     Route: 048
  4. PROMETHAZINE HCL [Concomitant]
     Indication: VOMITING
     Route: 048
  5. PROMETHAZINE HCL [Concomitant]
     Indication: NAUSEA
     Dosage: AS NEEDED
     Route: 048
  6. MYLANTA [Concomitant]
     Route: 048
  7. MYLANTA [Concomitant]
     Route: 048
  8. MYLANTA [Concomitant]
     Dosage: 2 TO 4 TEASPOONS AS NEEDED, ORAL
     Route: 048
  9. PROVENTIL [Concomitant]
     Indication: ASTHMA
     Dosage: 2 PUFFS AS NEEDED, INHALATION
     Route: 055
  10. AZMACORT [Concomitant]
     Indication: ASTHMA
     Dosage: 4 PUFFS AS NEEDED, INHALATION
     Route: 055
  11. SULCONAZOLE [Concomitant]
     Dosage: AS NEEDED
     Route: 048
  12. VALIUM [Concomitant]
     Indication: ANXIETY
     Dosage: AS NEEDED
     Route: 048
  13. NYSTATIN [Concomitant]
     Route: 061
  14. CHLORATRAMETROLAZE [Concomitant]
     Indication: DERMATITIS
     Route: 061
  15. UREA [Concomitant]
     Route: 061
  16. CROMOLYN SODIUM [Concomitant]
     Route: 045
  17. TEARGEN [Concomitant]
     Dosage: 1.4%
     Route: 047
  18. SAMCRICLOVIR [Concomitant]
     Indication: EPSTEIN-BARR VIRUS INFECTION
     Route: 048
  19. FEXOFENADINE HYDROCHLORIDE [Concomitant]
     Route: 048
  20. CELEBREX [Concomitant]
     Indication: FIBROMYALGIA
     Route: 048
  21. BACLOFEN [Concomitant]
     Indication: BACK PAIN
     Route: 048
  22. OXYCODONE [Concomitant]
     Route: 048
  23. OXYCODONE [Concomitant]
     Indication: PAIN
     Route: 048
  24. ZANAFLEX [Concomitant]
     Indication: MUSCLE SPASMS
     Route: 048
  25. BENZONATATE [Concomitant]
     Route: 048
  26. NPH INSULIN [Concomitant]
     Dosage: 40 UNITS AM, AND 20 UNITS PM, SUBCUTANEOUS
     Route: 058
  27. REGULAR INSULIN [Concomitant]
     Dosage: 4 TO 12 UNITS, 4 TIMES PER DAY AS NEEDED, SUBCUTANEOUS
     Route: 058
  28. SINGULAIR [Concomitant]
     Route: 048
  29. PAXIL [Concomitant]
     Indication: DEPRESSION
     Route: 048
  30. BENADRYL [Concomitant]
     Route: 048
  31. SYNTHROID [Concomitant]
     Indication: HYPOTHYROIDISM
     Route: 048
  32. IRBESARTAN [Concomitant]
     Indication: BLOOD PRESSURE
     Route: 048
  33. LIPITOR [Concomitant]
     Route: 048
  34. LORAZEPAM [Concomitant]
     Indication: ANXIETY
     Route: 048
  35. BUSPAR [Concomitant]
     Indication: ANXIETY
     Route: 048
  36. TEGRETOL [Concomitant]
     Route: 048
  37. OMEPRAZOLE [Concomitant]
     Route: 048
  38. STOOL SOFTENER [Concomitant]
     Indication: CONSTIPATION
     Route: 048
  39. TRAZODONE HCL [Concomitant]
     Indication: SLEEP DISORDER THERAPY
     Route: 048

REACTIONS (6)
  - APPLICATION SITE ERYTHEMA [None]
  - APPLICATION SITE PRURITUS [None]
  - APPLICATION SITE VESICLES [None]
  - INTERVERTEBRAL DISC PROTRUSION [None]
  - MENISCUS LESION [None]
  - URINARY TRACT INFECTION [None]
